FAERS Safety Report 5910887-9 (Version None)
Quarter: 2008Q4

REPORT INFORMATION
  Report Type: 
  Country: None (occurrence: None)
  Receive Date: 20081007
  Receipt Date: 20080625
  Transmission Date: 20090506
  Serious: No
  Sender: FDA-Public Use
  Company Number: US-ASTRAZENECA-2008UW12783

PATIENT
  Age: 66 Year
  Sex: Female
  Weight: 77.1 kg

DRUGS (7)
  1. ARIMIDEX [Suspect]
     Indication: BREAST CANCER
     Route: 048
  2. TOPROL-XL [Concomitant]
  3. DIOVAN [Concomitant]
  4. METFORMIN HCL [Concomitant]
  5. TRIAMTERENE [Concomitant]
  6. ZYRTEC [Concomitant]
  7. VYTORIN [Concomitant]

REACTIONS (1)
  - ARTHRALGIA [None]
